FAERS Safety Report 9133151 (Version 1)
Quarter: 2013Q1

REPORT INFORMATION
  Report Type: Spontaneous
  Country: US (occurrence: US)
  Receive Date: 20130126
  Receipt Date: 20130126
  Transmission Date: 20140127
  Serious: No
  Sender: FDA-Public Use
  Company Number: US-009507513-1301USA004838

PATIENT
  Age: 17 None
  Sex: Female

DRUGS (1)
  1. IMPLANON [Suspect]
     Dosage: 1 DF, UNK
     Route: 059
     Dates: start: 20120127, end: 20130108

REACTIONS (3)
  - Implant site pain [Unknown]
  - Medical device complication [Unknown]
  - Product quality issue [Unknown]
